FAERS Safety Report 15614578 (Version 1)
Quarter: 2018Q4

REPORT INFORMATION
  Report Type: Other
  Country: ES (occurrence: ES)
  Receive Date: 20181113
  Receipt Date: 20181113
  Transmission Date: 20190205
  Serious: Yes (Hospitalization, Other)
  Sender: FDA-Public Use
  Company Number: ES-CELLTRION INC.-2018ES023657

PATIENT

DRUGS (2)
  1. INFLIXIMAB (UNKNOWN) [Suspect]
     Active Substance: INFLIXIMAB
     Indication: CROHN^S DISEASE
     Dosage: LYOPHILIZED POWDER
     Route: 042
  2. ADALIMUMAB [Suspect]
     Active Substance: ADALIMUMAB
     Indication: CROHN^S DISEASE
     Route: 065

REACTIONS (9)
  - Proctocolectomy [Unknown]
  - Hidradenitis [Recovering/Resolving]
  - Crohn^s disease [Unknown]
  - Pyoderma [Unknown]
  - Fistula [Unknown]
  - Purulent discharge [Unknown]
  - Crohn^s disease [Unknown]
  - Drug ineffective [Unknown]
  - Ileostomy [Unknown]

NARRATIVE: CASE EVENT DATE: 201310
